FAERS Safety Report 20208602 (Version 3)
Quarter: 2022Q2

REPORT INFORMATION
  Report Type: Spontaneous
  Country: US (occurrence: US)
  Receive Date: 20211220
  Receipt Date: 20220527
  Transmission Date: 20220720
  Serious: Yes (Hospitalization, Other)
  Sender: FDA-Public Use
  Company Number: US-PFIZER INC-202100994038

PATIENT
  Age: 80 Year
  Sex: Male
  Weight: 89.796 kg

DRUGS (2)
  1. XELJANZ [Suspect]
     Active Substance: TOFACITINIB CITRATE
     Dosage: 5 MG, 1X/DAY
  2. XELJANZ [Suspect]
     Active Substance: TOFACITINIB CITRATE
     Dosage: 5 MG, 2X/DAY

REACTIONS (5)
  - COVID-19 [Unknown]
  - Cardiac operation [Unknown]
  - Psoriatic arthropathy [Unknown]
  - Intentional product misuse [Unknown]
  - Feeling abnormal [Unknown]
